FAERS Safety Report 24429263 (Version 1)
Quarter: 2024Q4

REPORT INFORMATION
  Report Type: Spontaneous
  Country: US (occurrence: US)
  Receive Date: 20241011
  Receipt Date: 20241011
  Transmission Date: 20250114
  Serious: Yes (Hospitalization)
  Sender: VERTEX
  Company Number: US-VERTEX PHARMACEUTICALS-2024-015846

PATIENT
  Sex: Female

DRUGS (2)
  1. TRIKAFTA [Suspect]
     Active Substance: ELEXACAFTOR\IVACAFTOR\TEZACAFTOR
     Indication: Cystic fibrosis
     Dosage: UNK
     Route: 048
  2. ACETYLCYSTEINE [Concomitant]
     Active Substance: ACETYLCYSTEINE

REACTIONS (1)
  - Neonatal intestinal dilatation [Recovered/Resolved]
